FAERS Safety Report 9416103 (Version 1)
Quarter: 2013Q3

REPORT INFORMATION
  Report Type: Spontaneous
  Country: US (occurrence: None)
  Receive Date: 20130717
  Receipt Date: 20130717
  Transmission Date: 20140515
  Serious: Yes (Hospitalization)
  Sender: FDA-Public Use
  Company Number: 2013US001941

PATIENT
  Age: 76 Year
  Sex: Female

DRUGS (5)
  1. ICLUSIG (PONATINIB) TABLET, 45 MG [Suspect]
     Indication: ACUTE LYMPHOCYTIC LEUKAEMIA
     Route: 048
     Dates: start: 20130523
  2. PERCOCET [Concomitant]
  3. FENTANYL (FENTANYL) [Concomitant]
  4. ANITHYPERTENSIVES [Concomitant]
  5. CARDIAC THERAPY [Concomitant]

REACTIONS (6)
  - Clostridium difficile infection [None]
  - Dehydration [None]
  - Renal failure [None]
  - Pneumonia [None]
  - Diarrhoea [None]
  - Hypertension [None]
